FAERS Safety Report 7909755-2 (Version None)
Quarter: 2011Q4

REPORT INFORMATION
  Report Type: 
  Country: None (occurrence: None)
  Receive Date: 20111111
  Receipt Date: 20110729
  Transmission Date: 20120403
  Serious: No
  Sender: FDA-Public Use
  Company Number: US-BAYER-2011-069399

PATIENT
  Sex: Female

DRUGS (3)
  1. TYLENOL REGULAR [Concomitant]
     Dosage: UNK
     Route: 048
     Dates: start: 20110729
  2. EXCEDRIN [ACETYLSALICYLIC ACID,CAFFEINE,PARACETAMOL,SALICYLAMIDE] [Concomitant]
     Dosage: UNK
     Route: 048
     Dates: start: 20110729
  3. ALEVE (CAPLET) [Suspect]
     Indication: HEADACHE
     Dosage: UNK
     Route: 048
     Dates: start: 20110729

REACTIONS (1)
  - HEADACHE [None]
